FAERS Safety Report 5626428-X (Version None)
Quarter: 2008Q1

REPORT INFORMATION
  Report Type: 
  Country: None (occurrence: None)
  Receive Date: 20080214
  Receipt Date: 20080208
  Transmission Date: 20080703
  Serious: Yes (Other)
  Sender: FDA-Public Use
  Company Number: US-JNJFOC-20080202186

PATIENT
  Age: 14 Year
  Sex: Male
  Weight: 77.11 kg

DRUGS (3)
  1. TYLENOL COLD MULTI-SYMPTOM NIGHTTIME COOL BURST [Suspect]
     Indication: COUGH
     Route: 048
  2. TYLENOL COLD MULTI-SYMPTOM NIGHTTIME COOL BURST [Suspect]
     Indication: NASOPHARYNGITIS
     Route: 048
  3. ROBITUSSIN [Suspect]
     Indication: COUGH

REACTIONS (1)
  - HALLUCINATION [None]
